FAERS Safety Report 20911506 (Version 1)
Quarter: 2022Q2

REPORT INFORMATION
  Report Type: Spontaneous
  Country: AU (occurrence: AU)
  Receive Date: 20220603
  Receipt Date: 20220603
  Transmission Date: 20220720
  Serious: Yes (Death, Hospitalization, Other)
  Sender: FDA-Public Use
  Company Number: AU-PFIZER INC-202200773137

PATIENT
  Age: 59 Year
  Sex: Female

DRUGS (4)
  1. CLOZAPINE [Suspect]
     Active Substance: CLOZAPINE
     Dosage: UNK
     Dates: start: 20200721
  2. CLOZAPINE [Suspect]
     Active Substance: CLOZAPINE
     Dosage: 325 MG, UNK
     Dates: end: 20220526
  3. MORPHINE SULFATE [Suspect]
     Active Substance: MORPHINE SULFATE
     Dosage: UNK, AS NEEDED (PRN)
  4. AMISULPRIDE [Concomitant]
     Active Substance: AMISULPRIDE
     Dosage: UNK

REACTIONS (5)
  - Non-small cell lung cancer metastatic [Fatal]
  - Hypoxia [Unknown]
  - Dysphagia [Unknown]
  - Somnolence [Unknown]
  - General physical health deterioration [Unknown]

NARRATIVE: CASE EVENT DATE: 20210101
